FAERS Safety Report 25225629 (Version 1)
Quarter: 2025Q2

REPORT INFORMATION
  Report Type: Spontaneous
  Country: CA (occurrence: CA)
  Receive Date: 20250422
  Receipt Date: 20250422
  Transmission Date: 20250717
  Serious: Yes (Other)
  Sender: PFIZER
  Company Number: CA-PFIZER INC-202500083347

PATIENT
  Age: 27 Year
  Sex: Male

DRUGS (4)
  1. BACTERIOSTATIC SODIUM CHLORIDE [Suspect]
     Active Substance: SODIUM CHLORIDE
     Indication: Seasonal allergy
     Route: 058
  2. BACTERIOSTATIC SODIUM CHLORIDE [Suspect]
     Active Substance: SODIUM CHLORIDE
     Indication: Rhinitis allergic
  3. PHENOL [Suspect]
     Active Substance: PHENOL
     Indication: Seasonal allergy
     Route: 058
  4. PHENOL [Suspect]
     Active Substance: PHENOL
     Indication: Rhinitis allergic

REACTIONS (8)
  - Wrong dose [Recovered/Resolved]
  - Product packaging confusion [Recovered/Resolved]
  - Dyspnoea [Recovered/Resolved]
  - Flushing [Recovered/Resolved]
  - Sinus congestion [Recovered/Resolved]
  - Swelling face [Recovered/Resolved]
  - Throat tightness [Recovered/Resolved]
  - Off label use [Unknown]
